FAERS Safety Report 9091000 (Version 1)
Quarter: 2013Q1

REPORT INFORMATION
  Report Type: Spontaneous
  Country: BR (occurrence: BR)
  Receive Date: 20130131
  Receipt Date: 20130131
  Transmission Date: 20140127
  Serious: Yes (Other)
  Sender: FDA-Public Use
  Company Number: BR-PFIZER INC-2013026242

PATIENT
  Age: 45 Year
  Sex: Female
  Weight: 63 kg

DRUGS (7)
  1. PRISTIQ [Suspect]
     Indication: DEPRESSION
     Dosage: 50 MG, 1X/DAY
     Route: 048
     Dates: start: 20121128, end: 20121201
  2. PRISTIQ [Suspect]
     Dosage: 2 TABLETS OF 50 MG, UNSPECIFIED FREQUENCY, FOR 5 DAYS
     Route: 048
     Dates: start: 20121202, end: 20121206
  3. PRISTIQ [Suspect]
     Dosage: 1 TABLET OF 100 MG, DAILY
     Route: 048
     Dates: start: 20121207, end: 201301
  4. FRONTAL [Concomitant]
     Indication: DEPRESSION
     Dosage: 0.5 MG STRENGTH, 1 TABLET ONCE A DAY
     Dates: start: 20120921, end: 2012
  5. FRONTAL [Concomitant]
     Dosage: 2 MG STRENGTH
     Dates: start: 2012
  6. FRONTAL [Concomitant]
     Dosage: 0.5 MG STRENGTH
  7. AMPLICTIL [Concomitant]
     Indication: DEPRESSION
     Dosage: UNSPECIFIED DOSE, 10 DROPS BEFORE SLEPPING
     Dates: start: 20120921

REACTIONS (2)
  - Haematochezia [Unknown]
  - Constipation [Unknown]
